FAERS Safety Report 9303442 (Version 1)
Quarter: 2013Q2

REPORT INFORMATION
  Report Type: Spontaneous
  Country: US (occurrence: US)
  Receive Date: 20130522
  Receipt Date: 20130522
  Transmission Date: 20140414
  Serious: Yes (Death, Congenital Anomaly, Other)
  Sender: FDA-Public Use
  Company Number: US-ELI_LILLY_AND_COMPANY-US201305004151

PATIENT
  Age: 0 Year
  Sex: 0

DRUGS (6)
  1. HUMALOG LISPRO [Suspect]
     Indication: GESTATIONAL DIABETES
     Route: 064
  2. HUMALOG LISPRO [Suspect]
     Indication: GESTATIONAL DIABETES
     Route: 064
  3. ZOLOFT [Concomitant]
     Route: 064
  4. ZOLOFT [Concomitant]
     Route: 064
  5. XANAX [Concomitant]
     Route: 064
  6. XANAX [Concomitant]
     Route: 064

REACTIONS (6)
  - Trisomy 13 [Fatal]
  - Trisomy 18 [Fatal]
  - Hydranencephaly [Unknown]
  - Neonatal disorder [Unknown]
  - Foetal exposure during pregnancy [Recovered/Resolved]
  - Premature baby [Recovered/Resolved]
